FAERS Safety Report 19308570 (Version 4)
Quarter: 2021Q3

REPORT INFORMATION
  Report Type: Spontaneous
  Country: JP (occurrence: JP)
  Receive Date: 20210526
  Receipt Date: 20210928
  Transmission Date: 20211014
  Serious: Yes (Life-Threatening)
  Sender: FDA-Public Use
  Company Number: JP-ROCHE-2833919

PATIENT
  Age: 72 Year
  Sex: Male
  Weight: 61.3 kg

DRUGS (5)
  1. 5?FU [FLUOROURACIL] [Concomitant]
     Active Substance: FLUOROURACIL
     Indication: RECTAL CANCER
     Dosage: 2500 MILLIGRAM
     Route: 040
     Dates: start: 20210113, end: 20210427
  2. CALCIUM LEVOFOLINATE [Concomitant]
     Active Substance: LEVOLEUCOVORIN CALCIUM
     Indication: RECTAL CANCER
     Dosage: 300 MILLIGRAM
     Route: 041
     Dates: start: 20210113, end: 20210427
  3. OXALIPLATIN. [Concomitant]
     Active Substance: OXALIPLATIN
     Indication: RECTAL CANCER
     Dosage: 100 MILLIGRAM
     Route: 041
     Dates: start: 20210113, end: 20210427
  4. 5?FU [FLUOROURACIL] [Concomitant]
     Active Substance: FLUOROURACIL
     Dosage: 400 MILLIGRAM
     Route: 041
     Dates: start: 20210113, end: 20210427
  5. AVASTIN [Suspect]
     Active Substance: BEVACIZUMAB
     Indication: COLON CANCER
     Dosage: 300 MILLIGRAM, ONCE/3WEEKS
     Route: 041
     Dates: start: 20210113, end: 20210427

REACTIONS (4)
  - Ileal perforation [Recovered/Resolved]
  - Septic shock [Unknown]
  - Peritonitis [Unknown]
  - Tumour necrosis [Not Recovered/Not Resolved]

NARRATIVE: CASE EVENT DATE: 20210507
